FAERS Safety Report 5797889-0 (Version None)
Quarter: 2008Q2

REPORT INFORMATION
  Report Type: 
  Country: None (occurrence: None)
  Receive Date: 20080630
  Receipt Date: 20080613
  Transmission Date: 20081010
  Serious: Yes (Disabling)
  Sender: FDA-Public Use
  Company Number: 001#1#2008-00387

PATIENT
  Age: 72 Year
  Sex: Male

DRUGS (1)
  1. ALPROSTADIL [Suspect]
     Indication: ARTERIAL OCCLUSIVE DISEASE
     Dosage: 2 DF (1 DF 2 IN 1 DAY (S)

REACTIONS (2)
  - CONDITION AGGRAVATED [None]
  - TOE AMPUTATION [None]
